FAERS Safety Report 7751662-2 (Version None)
Quarter: 2011Q3

REPORT INFORMATION
  Report Type: 
  Country: None (occurrence: None)
  Receive Date: 20110914
  Receipt Date: 20110825
  Transmission Date: 20111222
  Serious: Yes (Hospitalization, Other)
  Sender: FDA-Public Use
  Company Number: PHHY2011BR47711

PATIENT
  Sex: Female
  Weight: 64 kg

DRUGS (5)
  1. RESPIRATORY SYSTEM [Concomitant]
  2. RASILEZ HCT [Suspect]
     Dosage: 300 MG, UNK
     Dates: start: 20100801
  3. RASILEZ [Suspect]
     Indication: HYPERTENSION
     Dosage: 1 DF, UNK,DAILY
     Route: 048
  4. CHOLESTEROL [Concomitant]
  5. NORFLOXACIN [Concomitant]
     Indication: URINARY TRACT INFECTION

REACTIONS (3)
  - SYNCOPE [None]
  - URINARY TRACT INFECTION [None]
  - HYPOTENSION [None]
